FAERS Safety Report 5278756-8 (Version None)
Quarter: 2007Q1

REPORT INFORMATION
  Report Type: 
  Country: None (occurrence: None)
  Receive Date: 20061213
  Receipt Date: 20060131
  Transmission Date: 20070707
  Serious: No
  Sender: FDA-Public Use
  Company Number: 2006UW00182

PATIENT
  Age: 51 Year
  Sex: Female
  Weight: 51.709 kg

DRUGS (5)
  1. SEROQUEL [Suspect]
     Indication: ANXIETY
     Dosage: 125 MG HS PO
     Route: 048
     Dates: start: 20050401, end: 20051101
  2. SEROQUEL [Suspect]
     Indication: BIPOLAR II DISORDER
     Dosage: 125 MG HS PO
     Route: 048
     Dates: start: 20050401, end: 20051101
  3. SEROQUEL [Suspect]
     Indication: SOMNOLENCE
     Dosage: 125 MG HS PO
     Route: 048
     Dates: start: 20050401, end: 20051101
  4. LAMICTAL ^BURROUGHS WELLCOME^ [Concomitant]
  5. EFFEXOR [Concomitant]

REACTIONS (1)
  - TARDIVE DYSKINESIA [None]
